FAERS Safety Report 21799644 (Version 3)
Quarter: 2023Q4

REPORT INFORMATION
  Report Type: Report from Study
  Country: US (occurrence: US)
  Receive Date: 20221230
  Receipt Date: 20231222
  Transmission Date: 20240109
  Serious: Yes (Death, Other)
  Sender: FDA-Public Use
  Company Number: US-TAKEDA-2022TUS087216

PATIENT
  Age: 59 Year
  Sex: Female
  Weight: 82 kg

DRUGS (7)
  1. MOBOCERTINIB [Suspect]
     Active Substance: MOBOCERTINIB
     Indication: Lung neoplasm malignant
     Dosage: 40 MILLIGRAM, BID
     Route: 048
     Dates: start: 20221103
  2. MOBOCERTINIB [Suspect]
     Active Substance: MOBOCERTINIB
     Dosage: UNK UNK, QD
     Route: 065
     Dates: start: 20221108
  3. MOBOCERTINIB [Suspect]
     Active Substance: MOBOCERTINIB
     Dosage: 160 MILLIGRAM, QD
     Route: 065
     Dates: start: 202211
  4. MOBOCERTINIB [Suspect]
     Active Substance: MOBOCERTINIB
     Dosage: 160 MILLIGRAM, QD
     Route: 048
     Dates: start: 20231108
  5. LISINOPRIL [Concomitant]
     Active Substance: LISINOPRIL
     Indication: Hypertension
     Dosage: UNK
     Route: 065
  6. VENLAFAXINE [Concomitant]
     Active Substance: VENLAFAXINE HYDROCHLORIDE
     Indication: Depression
     Dosage: UNK
     Route: 065
  7. SYNTHROID [Concomitant]
     Active Substance: LEVOTHYROXINE SODIUM
     Indication: Hypoparathyroidism
     Dosage: UNK
     Route: 065

REACTIONS (4)
  - Death [Fatal]
  - Lung neoplasm malignant [Not Recovered/Not Resolved]
  - Skin disorder [Unknown]
  - Diarrhoea [Not Recovered/Not Resolved]

NARRATIVE: CASE EVENT DATE: 20221110
